FAERS Safety Report 18853966 (Version 1)
Quarter: 2021Q1

REPORT INFORMATION
  Report Type: Spontaneous
  Country: US (occurrence: US)
  Receive Date: 20210205
  Receipt Date: 20210205
  Transmission Date: 20210420
  Serious: Yes (Other)
  Sender: FDA-Public Use
  Company Number: US-PFIZER INC-2021005059

PATIENT
  Age: 64 Year
  Sex: Female

DRUGS (9)
  1. XELJANZ [Concomitant]
     Active Substance: TOFACITINIB CITRATE
  2. TRAMADOL. [Concomitant]
     Active Substance: TRAMADOL
     Indication: TENDON RUPTURE
     Dosage: UNK
     Dates: start: 2020
  3. TRAMADOL. [Concomitant]
     Active Substance: TRAMADOL
     Indication: PERIARTHRITIS
  4. TYLENOL [Concomitant]
     Active Substance: ACETAMINOPHEN
     Indication: TENDON RUPTURE
     Dosage: UNK
  5. TYLENOL [Concomitant]
     Active Substance: ACETAMINOPHEN
     Indication: BURSITIS
  6. LYRICA [Suspect]
     Active Substance: PREGABALIN
     Indication: TENDON RUPTURE
     Dosage: UNK
     Dates: start: 2020
  7. TRAMADOL. [Concomitant]
     Active Substance: TRAMADOL
     Indication: BURSITIS
  8. LYRICA [Suspect]
     Active Substance: PREGABALIN
     Indication: BURSITIS
  9. LYRICA [Suspect]
     Active Substance: PREGABALIN
     Indication: PERIARTHRITIS

REACTIONS (4)
  - Mobility decreased [Unknown]
  - Tooth abscess [Unknown]
  - Off label use [Unknown]
  - Pain [Unknown]

NARRATIVE: CASE EVENT DATE: 2020
